FAERS Safety Report 9005069 (Version 1)
Quarter: 2013Q1

REPORT INFORMATION
  Report Type: Spontaneous
  Country: US (occurrence: None)
  Receive Date: 20130107
  Receipt Date: 20130107
  Transmission Date: 20140127
  Serious: No
  Sender: FDA-Public Use
  Company Number: None

PATIENT
  Age: 50 Year
  Sex: Female
  Weight: 62.14 kg

DRUGS (1)
  1. ACTONEL [Suspect]
     Indication: BONE DENSITY DECREASED
     Dosage: 1 TABLET MONTHLY PO
     Route: 048

REACTIONS (8)
  - Pain [None]
  - Abdominal pain [None]
  - Diarrhoea [None]
  - Chills [None]
  - Hyperhidrosis [None]
  - Influenza [None]
  - Gastrointestinal disorder [None]
  - Impaired work ability [None]
